FAERS Safety Report 19186226 (Version 2)
Quarter: 2021Q2

REPORT INFORMATION
  Report Type: Spontaneous
  Country: US (occurrence: US)
  Receive Date: 20210427
  Receipt Date: 20210428
  Transmission Date: 20210717
  Serious: Yes (Other)
  Sender: FDA-Public Use
  Company Number: US-PURDUE-USA-2021-0248343

PATIENT
  Sex: Female

DRUGS (2)
  1. BUTRANS [Suspect]
     Active Substance: BUPRENORPHINE
     Indication: PRODUCT USED FOR UNKNOWN INDICATION
     Dosage: 10 MCG/HR, WEEKLY
     Route: 062
     Dates: start: 20210406
  2. BUPRENORPHINE TRANSDERMAL PATCH (SIMILAR TO NDA 21?306) [Suspect]
     Active Substance: BUPRENORPHINE
     Indication: PRODUCT USED FOR UNKNOWN INDICATION
     Dosage: 10 MCG/HR, WEEKLY
     Route: 062

REACTIONS (12)
  - Vision blurred [Unknown]
  - Product adhesion issue [Unknown]
  - Drug withdrawal syndrome [Unknown]
  - Application site pruritus [Unknown]
  - Application site perspiration [Unknown]
  - Drug hypersensitivity [Unknown]
  - Autoimmune disorder [Unknown]
  - Speech disorder [Unknown]
  - Swollen tongue [Unknown]
  - Application site rash [Unknown]
  - Application site hypoaesthesia [Unknown]
  - Dermatitis contact [Unknown]
